FAERS Safety Report 4512373-X (Version None)
Quarter: 2004Q4

REPORT INFORMATION
  Report Type: 
  Country: None (occurrence: None)
  Receive Date: 20041123
  Receipt Date: 20041105
  Transmission Date: 20050328
  Serious: Yes (Hospitalization)
  Sender: FDA-Public Use
  Company Number: DSA_25356_2004

PATIENT
  Age: 54 Year
  Sex: Female

DRUGS (4)
  1. TAVOR [Suspect]
     Dosage: DF ONCE PO
     Route: 048
     Dates: start: 20041101, end: 20041101
  2. CARBAMAZEPINE [Suspect]
     Dosage: DF ONCE PO
     Route: 048
     Dates: start: 20041101, end: 20041101
  3. QUILONUM [Suspect]
     Dosage: 8576 MG ONCE PO
     Route: 048
     Dates: start: 20041101, end: 20041101
  4. TREVILOR RETARD [Suspect]
     Dosage: DF ONCE PO
     Route: 048
     Dates: start: 20041101, end: 20041101

REACTIONS (4)
  - FATIGUE [None]
  - MULTIPLE DRUG OVERDOSE INTENTIONAL [None]
  - NAUSEA [None]
  - VOMITING [None]
